FAERS Safety Report 19248496 (Version 2)
Quarter: 2021Q2

REPORT INFORMATION
  Report Type: Spontaneous
  Country: US (occurrence: US)
  Receive Date: 20210512
  Receipt Date: 20210601
  Transmission Date: 20210717
  Serious: Yes (Hospitalization, Congenital Anomaly, Other)
  Sender: FDA-Public Use
  Company Number: US-INDIVIOR US-INDV-129599-2021

PATIENT

DRUGS (1)
  1. BUPRENORPHINE/NALOXONE [Suspect]
     Active Substance: BUPRENORPHINE\NALOXONE
     Indication: DRUG DEPENDENCE
     Dosage: UNK
     Route: 064

REACTIONS (5)
  - Conductive deafness [Unknown]
  - Otospondylomegaepiphyseal dysplasia [Unknown]
  - Cleft palate [Unknown]
  - Phimosis [Unknown]
  - Foetal exposure during pregnancy [Recovered/Resolved]
